FAERS Safety Report 10260712 (Version 1)
Quarter: 2014Q2

REPORT INFORMATION
  Report Type: Report from Study
  Country: US (occurrence: US)
  Receive Date: 20140626
  Receipt Date: 20140626
  Transmission Date: 20141212
  Serious: Yes (Hospitalization, Other)
  Sender: FDA-Public Use
  Company Number: US-BIOGENIDEC-2014BI057563

PATIENT
  Age: 60 Year
  Sex: Female

DRUGS (11)
  1. TYSABRI [Suspect]
     Indication: MULTIPLE SCLEROSIS
     Route: 042
     Dates: start: 20090622, end: 20140127
  2. TYSABRI [Suspect]
     Indication: MULTIPLE SCLEROSIS
     Route: 042
     Dates: start: 20140324
  3. VITAMIN D [Concomitant]
     Indication: VITAMIN D DEFICIENCY
     Route: 048
     Dates: start: 20140124
  4. TYLENOL [Concomitant]
     Indication: PAIN
     Route: 048
     Dates: start: 20120417
  5. REMERON [Concomitant]
     Indication: AFFECTIVE DISORDER
     Route: 048
     Dates: start: 20120301
  6. POTASSIUM CHLORIDE [Concomitant]
     Indication: HYPOKALAEMIA
     Route: 048
     Dates: start: 20110822
  7. PERCOCET [Concomitant]
     Indication: PAIN
     Route: 048
     Dates: start: 20110502
  8. NEXIUM [Concomitant]
     Indication: GASTROOESOPHAGEAL REFLUX DISEASE
     Route: 048
     Dates: start: 20120827
  9. MYLANTA [Concomitant]
     Indication: GASTROOESOPHAGEAL REFLUX DISEASE
     Route: 048
     Dates: start: 20110502
  10. MILK OF MAGNESIA [Concomitant]
     Indication: CONSTIPATION
     Route: 048
     Dates: start: 20110907
  11. LOPRESSOR [Concomitant]
     Indication: HYPERTENSION
     Route: 048
     Dates: start: 20120816

REACTIONS (1)
  - Pneumonia [Recovered/Resolved]
